FAERS Safety Report 14493086 (Version 3)
Quarter: 2018Q4

REPORT INFORMATION
  Report Type: Spontaneous
  Country: JP (occurrence: JP)
  Receive Date: 20180206
  Receipt Date: 20181227
  Transmission Date: 20190204
  Serious: Yes (Death, Other)
  Sender: FDA-Public Use
  Company Number: JP-SA-2017SA265041

PATIENT
  Age: 47 Year
  Sex: Male
  Weight: 80.5 kg

DRUGS (8)
  1. FLUOROURACIL. [Concomitant]
     Active Substance: FLUOROURACIL
     Dosage: 3200 MG
     Route: 041
     Dates: start: 20170308, end: 20171219
  2. ALOXI [Concomitant]
     Active Substance: PALONOSETRON HYDROCHLORIDE
     Indication: ANTIEMETIC SUPPORTIVE CARE
     Dosage: 0.75 MG/DAY AT EVERY ADMINISTRATION OF ZALTRAP
     Route: 065
     Dates: start: 20170308, end: 20171219
  3. DEXART [Concomitant]
     Active Substance: DEXAMETHASONE SODIUM PHOSPHATE
     Indication: STEROID THERAPY
     Dosage: 6.6 MG/DAY AT EVERY ADMINISTRATION OF ZALTRAP
     Route: 065
     Dates: start: 20170308, end: 20171219
  4. CALCIUM LEVOFOLINATE [Concomitant]
     Active Substance: LEVOLEUCOVORIN CALCIUM
     Indication: RECTAL CANCER
     Dosage: 250 MG
     Route: 042
     Dates: start: 20170308, end: 20171219
  5. FLUOROURACIL. [Concomitant]
     Active Substance: FLUOROURACIL
     Indication: RECTAL CANCER
     Dosage: 510 MG
     Route: 040
     Dates: start: 20170308, end: 20171219
  6. IRINOTECAN [Concomitant]
     Active Substance: IRINOTECAN
     Indication: RECTAL CANCER
     Dosage: 180 MG
     Route: 042
     Dates: start: 20170308, end: 20181219
  7. EMEND [Concomitant]
     Active Substance: APREPITANT
     Indication: PRODUCT USED FOR UNKNOWN INDICATION
     Dosage: 125 MG/DAY AT EVERY ADMINISTRATION OF ZALTRAP
     Route: 065
  8. ZALTRAP [Suspect]
     Active Substance: ZIV-AFLIBERCEPT
     Indication: RECTAL CANCER
     Dosage: 260 MG
     Route: 041
     Dates: start: 20171003, end: 20171219

REACTIONS (2)
  - Back pain [Unknown]
  - Arrhythmia [Fatal]

NARRATIVE: CASE EVENT DATE: 20171221
